FAERS Safety Report 5788986-4 (Version None)
Quarter: 2008Q2

REPORT INFORMATION
  Report Type: 
  Country: None (occurrence: None)
  Receive Date: 20080623
  Receipt Date: 20080606
  Transmission Date: 20081010
  Serious: Yes (Hospitalization, Disabling)
  Sender: FDA-Public Use
  Company Number: DAB-2008-00027

PATIENT
  Age: 61 Year
  Sex: Male
  Weight: 89.7 kg

DRUGS (5)
  1. EPIRUBICIN HCL [Suspect]
     Indication: GASTRIC CANCER
     Dosage: INTRAVENOUS BOLUS
     Route: 040
     Dates: start: 20071219, end: 20071219
  2. CISPLATIN [Suspect]
     Indication: GASTRIC CANCER
     Dosage: INTRAVENOUS
     Route: 042
     Dates: start: 20071219, end: 20071219
  3. XELODA [Suspect]
     Indication: GASTRIC CANCER
     Dosage: 575 MG, 1 IN 2 DAYS, ORAL
     Route: 048
     Dates: start: 20071220, end: 20080101
  4. DEXAMETHASONE TAB [Concomitant]
  5. GRANISERON(GRANISETRON) [Concomitant]

REACTIONS (4)
  - ACIDOSIS [None]
  - HYPERGLYCAEMIC HYPEROSMOLAR NONKETOTIC SYNDROME [None]
  - LEG AMPUTATION [None]
  - PERIPHERAL ISCHAEMIA [None]
